FAERS Safety Report 9319957 (Version 2)
Quarter: 2014Q1

REPORT INFORMATION
  Report Type: Spontaneous
  Country: AU (occurrence: AU)
  Receive Date: 20130530
  Receipt Date: 20140211
  Transmission Date: 20141002
  Serious: Yes (Other)
  Sender: FDA-Public Use
  Company Number: AU-MYLANLABS-2013S1011033

PATIENT
  Age: 41 Year
  Sex: Male

DRUGS (9)
  1. QUETIAPINE [Suspect]
     Indication: OVERDOSE
     Dosage: 18G
     Route: 048
  2. CARBAMAZEPINE [Suspect]
     Indication: OVERDOSE
     Dosage: 10G
     Route: 048
  3. FLUOXETINE [Suspect]
     Indication: OVERDOSE
     Dosage: 240MG
     Route: 048
  4. OXAZEPAM [Suspect]
     Indication: OVERDOSE
     Dosage: 375MG
     Route: 048
  5. SODIUM VALPROATE [Suspect]
     Indication: OVERDOSE
     Dosage: 35G
     Route: 048
  6. EPINEPHRINE [Suspect]
     Indication: VASOPLEGIA SYNDROME
     Route: 042
  7. METARAMINOL [Concomitant]
     Indication: VASOPLEGIA SYNDROME
     Dosage: ESCALATING
     Route: 050
  8. NOREPINEPHRINE [Concomitant]
     Indication: VASOPLEGIA SYNDROME
     Dosage: CONCOMITANT TO EPINEPHRINE
     Route: 065
  9. VASOPRESSIN [Concomitant]
     Indication: VASOPLEGIA SYNDROME
     Dosage: CONCOMITANT TO EPINEPHRINE
     Route: 065

REACTIONS (5)
  - Vasoplegia syndrome [Recovering/Resolving]
  - Shock [Recovering/Resolving]
  - Hypotension [Recovering/Resolving]
  - Overdose [Recovering/Resolving]
  - Toxicity to various agents [Recovering/Resolving]
